FAERS Safety Report 5345063-4 (Version None)
Quarter: 2007Q2

REPORT INFORMATION
  Report Type: 
  Country: None (occurrence: None)
  Receive Date: 20070426
  Receipt Date: 20061010
  Transmission Date: 20071010
  Serious: Yes (Hospitalization)
  Sender: FDA-Public Use
  Company Number: 2006125024

PATIENT
  Age: 15 Year
  Sex: Male
  Weight: 87.3 kg

DRUGS (1)
  1. GENOTROPIN [Suspect]
     Indication: GROWTH HORMONE DEFICIENCY
     Dosage: (3 MG,1 IN 1 WK)
     Dates: start: 20060720, end: 20060814

REACTIONS (1)
  - BENIGN INTRACRANIAL HYPERTENSION [None]
